FAERS Safety Report 14730043 (Version 1)
Quarter: 2018Q2

REPORT INFORMATION
  Report Type: Spontaneous
  Country: US (occurrence: US)
  Receive Date: 20180406
  Receipt Date: 20180406
  Transmission Date: 20180711
  Serious: Yes (Hospitalization)
  Sender: FDA-Public Use
  Company Number: US-LEXICON PHARMACEUTICALS, INC-18-1606-00347

PATIENT
  Age: 68 Year
  Sex: Male

DRUGS (19)
  1. ROPINIROLE. [Concomitant]
     Active Substance: ROPINIROLE
  2. AMLODIPINE [Concomitant]
     Active Substance: AMLODIPINE BESYLATE
  3. MAGNESIUM [Concomitant]
     Active Substance: MAGNESIUM
  4. PAROXETINE. [Concomitant]
     Active Substance: PAROXETINE
  5. PREDNISOLONE. [Concomitant]
     Active Substance: PREDNISOLONE
  6. TELOTRISTAT ETHYL [Suspect]
     Active Substance: TELOTRISTAT ETHYL
     Indication: CARCINOID SYNDROME
     Route: 048
     Dates: start: 20171005, end: 20180310
  7. TELOTRISTAT ETHYL [Suspect]
     Active Substance: TELOTRISTAT ETHYL
     Indication: CARCINOID TUMOUR OF THE SMALL BOWEL
     Route: 048
     Dates: start: 20180311
  8. VOLTAREN [Concomitant]
     Active Substance: DICLOFENAC SODIUM
  9. KLOR-CON [Concomitant]
     Active Substance: POTASSIUM CHLORIDE
  10. OPIUM TIN [Concomitant]
  11. ALLOPURINOL. [Concomitant]
     Active Substance: ALLOPURINOL
  12. ASPIR-LOW [Concomitant]
     Active Substance: ASPIRIN
  13. VITAMIN B12 [Concomitant]
     Active Substance: CYANOCOBALAMIN
  14. SANDOSTATIN [Concomitant]
     Active Substance: OCTREOTIDE ACETATE
  15. OMEPRAZOLE. [Concomitant]
     Active Substance: OMEPRAZOLE
  16. NIACIN. [Concomitant]
     Active Substance: NIACIN
  17. INDOMETHACIN. [Concomitant]
     Active Substance: INDOMETHACIN
  18. DICYCLOMINE [Concomitant]
     Active Substance: DICYCLOMINE HYDROCHLORIDE
  19. SERTRALINE [Concomitant]
     Active Substance: SERTRALINE HYDROCHLORIDE

REACTIONS (7)
  - Constipation [Unknown]
  - Dizziness [Unknown]
  - Insomnia [Unknown]
  - Blood iron decreased [Unknown]
  - Drug withdrawal syndrome [Unknown]
  - Back pain [Unknown]
  - Chest pain [Unknown]

NARRATIVE: CASE EVENT DATE: 20180211
